FAERS Safety Report 13450399 (Version 1)
Quarter: 2017Q2

REPORT INFORMATION
  Report Type: Spontaneous
  Country: LY (occurrence: LY)
  Receive Date: 20170418
  Receipt Date: 20170418
  Transmission Date: 20170830
  Serious: Yes (Other)
  Sender: FDA-Public Use
  Company Number: LY-ROCHE-1920798

PATIENT
  Age: 30 Year
  Sex: Male

DRUGS (4)
  1. ISMN [Concomitant]
     Active Substance: ISOSORBIDE MONONITRATE
     Route: 048
  2. MABTHERA [Suspect]
     Active Substance: RITUXIMAB
     Indication: SYSTEMIC LUPUS ERYTHEMATOSUS
     Route: 042
     Dates: start: 20170324
  3. ADALAT [Concomitant]
     Active Substance: NIFEDIPINE
     Route: 048
  4. LYRICA [Concomitant]
     Active Substance: PREGABALIN
     Route: 048

REACTIONS (3)
  - Off label use [Unknown]
  - Chest pain [Unknown]
  - Pleural effusion [Unknown]
